FAERS Safety Report 11138789 (Version 1)
Quarter: 2015Q2

REPORT INFORMATION
  Report Type: Spontaneous
  Country: US (occurrence: None)
  Receive Date: 20150526
  Receipt Date: 20150526
  Transmission Date: 20150821
  Serious: No
  Sender: FDA-Public Use
  Company Number: None

PATIENT
  Age: 60 Year
  Sex: Female

DRUGS (1)
  1. FERIVA [Suspect]
     Active Substance: ASCORBIC ACID\BIOTIN\CYANOCOBALAMIN\FERROUS BISGLYCINATE\FOLIC ACID
     Route: 048

REACTIONS (8)
  - Feeling abnormal [None]
  - Dizziness [None]
  - Abnormal faeces [None]
  - Retching [None]
  - Vomiting [None]
  - Vitamin D decreased [None]
  - Cold sweat [None]
  - Gastrointestinal haemorrhage [None]

NARRATIVE: CASE EVENT DATE: 20150423
